FAERS Safety Report 9904213 (Version 2)
Quarter: 2014Q1

REPORT INFORMATION
  Report Type: Spontaneous
  Country: US (occurrence: US)
  Receive Date: 20140218
  Receipt Date: 20140313
  Transmission Date: 20141002
  Serious: No
  Sender: FDA-Public Use
  Company Number: US-009507513-1402USA007655

PATIENT
  Sex: Male

DRUGS (2)
  1. PROVENTIL [Suspect]
     Indication: ASTHMA
     Dosage: INHR EA 90MCG 1 STANDARD DOSE OF 6.7, PRN
     Route: 055
  2. SYMBICORT [Concomitant]

REACTIONS (4)
  - Dyspnoea [Not Recovered/Not Resolved]
  - Drug dose omission [Unknown]
  - Product quality issue [Unknown]
  - Medication error [Unknown]
